FAERS Safety Report 6889421-5 (Version None)
Quarter: 2010Q3

REPORT INFORMATION
  Report Type: 
  Country: None (occurrence: None)
  Receive Date: 20100730
  Receipt Date: 20080220
  Transmission Date: 20110219
  Serious: No
  Sender: FDA-Public Use
  Company Number: US-PFIZER INC-2008015718

PATIENT
  Sex: Male

DRUGS (2)
  1. LIPITOR [Suspect]
  2. ZETIA [Concomitant]

REACTIONS (3)
  - ARTHRALGIA [None]
  - MUSCULAR WEAKNESS [None]
  - NAUSEA [None]
